FAERS Safety Report 24614003 (Version 2)
Quarter: 2025Q4

REPORT INFORMATION
  Report Type: Spontaneous
  Country: EU (occurrence: EU)
  Receive Date: 20241113
  Receipt Date: 20251117
  Transmission Date: 20260118
  Serious: Yes (Life-Threatening, Hospitalization)
  Sender: VERTEX
  Company Number: EU-VERTEX PHARMACEUTICALS-2024-017648

PATIENT
  Sex: Male
  Weight: 3 kg

DRUGS (3)
  1. ELEXACAFTOR\IVACAFTOR\TEZACAFTOR [Suspect]
     Active Substance: ELEXACAFTOR\IVACAFTOR\TEZACAFTOR
     Indication: Cystic fibrosis
     Dosage: UNKNOWN DOSAGE REGIMEN
     Route: 064
     Dates: start: 202001
  2. LEVETIRACETAM [Concomitant]
     Active Substance: LEVETIRACETAM
     Indication: Juvenile myoclonic epilepsy
  3. VALPROIC ACID [Concomitant]
     Active Substance: VALPROIC ACID
     Indication: Juvenile myoclonic epilepsy

REACTIONS (7)
  - Respiratory distress [Recovering/Resolving]
  - Faecal elastase concentration decreased [Unknown]
  - Weight gain poor [Recovering/Resolving]
  - Cholelithiasis [Unknown]
  - Sweat test abnormal [Unknown]
  - Staphylococcal infection [Recovering/Resolving]
  - Pseudomonas infection [Recovering/Resolving]
